FAERS Safety Report 25265413 (Version 7)
Quarter: 2025Q4

REPORT INFORMATION
  Report Type: Report from Study
  Country: US (occurrence: US)
  Receive Date: 20250502
  Receipt Date: 20251229
  Transmission Date: 20260118
  Serious: Yes (Hospitalization)
  Sender: EISAI
  Company Number: US-Eisai-EC-2025-187864

PATIENT
  Age: 76 Year
  Sex: Female

DRUGS (11)
  1. LENVIMA [Suspect]
     Active Substance: LENVATINIB
     Indication: Renal cancer
     Route: 048
     Dates: start: 20250412, end: 20250422
  2. LENVIMA [Suspect]
     Active Substance: LENVATINIB
     Dosage: MISSED ONE DOSE FOR ENDOSCOPIC CHOLANGIOPANCREATOGRAPHY PROCEDURE.
     Route: 048
     Dates: start: 20250502
  3. LENVIMA [Suspect]
     Active Substance: LENVATINIB
     Route: 048
     Dates: start: 2025, end: 20250908
  4. LENVIMA [Suspect]
     Active Substance: LENVATINIB
     Dosage: MISSED ONE DOSE
     Route: 048
     Dates: start: 20250909, end: 202511
  5. LENVIMA [Suspect]
     Active Substance: LENVATINIB
     Dosage: MISSED ONE DOSE
     Route: 048
     Dates: start: 202511
  6. KEYTRUDA [Concomitant]
     Active Substance: PEMBROLIZUMAB
     Indication: Renal cancer
     Dosage: DOSE UNKNOWN
     Route: 042
  7. LOSARTAN [Concomitant]
     Active Substance: LOSARTAN
  8. LASIX [Concomitant]
     Active Substance: FUROSEMIDE
  9. HYDRALAZINE [Concomitant]
     Active Substance: HYDRALAZINE HYDROCHLORIDE
  10. INTRAVENOUS SODIUM [Concomitant]
  11. LEVOTHYROXINE [Concomitant]
     Active Substance: LEVOTHYROXINE

REACTIONS (21)
  - Oedema peripheral [Recovered/Resolved]
  - Confusional state [Recovered/Resolved]
  - Nausea [Recovering/Resolving]
  - Decreased appetite [Not Recovered/Not Resolved]
  - Asthenia [Recovered/Resolved]
  - Fatigue [Not Recovered/Not Resolved]
  - Dysarthria [Recovered/Resolved]
  - Flank pain [Recovered/Resolved]
  - Abdominal pain [Not Recovered/Not Resolved]
  - Insomnia [Not Recovered/Not Resolved]
  - Somnolence [Recovered/Resolved]
  - Hypertension [Not Recovered/Not Resolved]
  - Hyponatraemia [Recovered/Resolved]
  - Gait inability [Recovered/Resolved]
  - Agitation [Recovered/Resolved]
  - Headache [Not Recovered/Not Resolved]
  - Anxiety [Not Recovered/Not Resolved]
  - Diarrhoea [Not Recovered/Not Resolved]
  - Heart rate decreased [Not Recovered/Not Resolved]
  - Oropharyngeal pain [Not Recovered/Not Resolved]
  - Blood pressure fluctuation [Not Recovered/Not Resolved]

NARRATIVE: CASE EVENT DATE: 20250101
